FAERS Safety Report 16105523 (Version 2)
Quarter: 2019Q2

REPORT INFORMATION
  Report Type: Spontaneous
  Country: US (occurrence: US)
  Receive Date: 20190322
  Receipt Date: 20190409
  Transmission Date: 20190711
  Serious: Yes (Other)
  Sender: FDA-Public Use
  Company Number: US-BAYER-2019-057068

PATIENT
  Age: 36 Year
  Sex: Female
  Weight: 62.59 kg

DRUGS (6)
  1. MIRENA [Suspect]
     Active Substance: LEVONORGESTREL
     Indication: CONTRACEPTION
     Dosage: 20 MCG/24HR, CONT
     Route: 015
     Dates: start: 20190220, end: 201903
  2. MIRENA [Suspect]
     Active Substance: LEVONORGESTREL
     Indication: CONTRACEPTION
  3. PRENATAL VITAMINS [MINERALS NOS;VITAMINS NOS] [Concomitant]
     Active Substance: MINERALS\VITAMINS
  4. MULTIPLE VITAMINS [Concomitant]
     Active Substance: VITAMINS
  5. MICRONOR [Concomitant]
     Active Substance: NORETHINDRONE
  6. HEATHER [CALLUNA VULGARIS] [Concomitant]

REACTIONS (4)
  - Genital haemorrhage [None]
  - Device dislocation [Recovered/Resolved]
  - Dysmenorrhoea [None]
  - Pelvic pain [None]

NARRATIVE: CASE EVENT DATE: 2019
